FAERS Safety Report 6616349-8 (Version None)
Quarter: 2010Q1

REPORT INFORMATION
  Report Type: 
  Country: None (occurrence: None)
  Receive Date: 20100305
  Receipt Date: 20100301
  Transmission Date: 20100710
  Serious: Yes (Death)
  Sender: FDA-Public Use
  Company Number: US-MEDIMMUNE-MEDI-0010626

PATIENT
  Sex: Male
  Weight: 8.49 kg

DRUGS (7)
  1. SYNAGIS [Suspect]
     Route: 030
     Dates: start: 20091029, end: 20100127
  2. ACETYLCYSTEINE [Concomitant]
  3. PREVACID [Concomitant]
  4. SODIUM CHLORIDE [Concomitant]
  5. SPIRONOLACTONE [Concomitant]
  6. CHLOROTHIAZIDE [Concomitant]
  7. TOBI [Concomitant]

REACTIONS (1)
  - DEATH [None]
